FAERS Safety Report 9715423 (Version 2)
Quarter: 2014Q1

REPORT INFORMATION
  Report Type: Spontaneous
  Country: IT (occurrence: IT)
  Receive Date: 20131127
  Receipt Date: 20140121
  Transmission Date: 20141002
  Serious: Yes (Other)
  Sender: FDA-Public Use
  Company Number: IT-JNJFOC-20131111485

PATIENT
  Age: 59 Year
  Sex: Male

DRUGS (3)
  1. IBUPROFEN (UNSPECIFIED) [Suspect]
     Indication: OROPHARYNGEAL PAIN
     Route: 048
     Dates: start: 20131101, end: 20131105
  2. BRONCHENOLO [Suspect]
     Indication: OROPHARYNGEAL PAIN
     Route: 048
     Dates: start: 20131101, end: 20131105
  3. NORVASC [Concomitant]
     Indication: PRODUCT USED FOR UNKNOWN INDICATION
     Route: 065

REACTIONS (2)
  - Erythema [Recovering/Resolving]
  - Angioedema [Recovering/Resolving]
